FAERS Safety Report 25635746 (Version 2)
Quarter: 2025Q3

REPORT INFORMATION
  Report Type: Other
  Country: EU (occurrence: EU)
  Receive Date: 20250802
  Receipt Date: 20250813
  Transmission Date: 20251021
  Serious: Yes (Other)
  Sender: MACLEODS
  Company Number: None

PATIENT

DRUGS (12)
  1. ARIPIPRAZOLE [Suspect]
     Active Substance: ARIPIPRAZOLE
     Indication: Depression
     Dosage: AT NIGHT
     Route: 048
  2. DULOXETINE [Suspect]
     Active Substance: DULOXETINE
     Indication: Depression
     Dosage: 60 MG, DAILY
     Route: 048
     Dates: start: 202103
  3. DULOXETINE [Suspect]
     Active Substance: DULOXETINE
     Indication: Anxiety
     Dosage: 90 MG, DAILY
     Route: 065
     Dates: start: 202110
  4. DULOXETINE [Suspect]
     Active Substance: DULOXETINE
     Indication: Insomnia
     Dosage: 60 MG, DAILY
     Route: 065
     Dates: start: 202107
  5. DULOXETINE [Suspect]
     Active Substance: DULOXETINE
     Dosage: AFTER 2 WEEKS, DULOXETINE DOSE WAS FURTHER INCREASED
     Route: 048
     Dates: start: 2021
  6. DULOXETINE [Suspect]
     Active Substance: DULOXETINE
     Dosage: 90 MG, PER DAY
     Route: 048
     Dates: start: 2021
  7. PREGABALIN [Suspect]
     Active Substance: PREGABALIN
     Indication: Depression
     Route: 065
     Dates: start: 202110
  8. PREGABALIN [Suspect]
     Active Substance: PREGABALIN
     Dosage: 75 MG, PER DAY
     Route: 048
     Dates: start: 202103
  9. PREGABALIN [Suspect]
     Active Substance: PREGABALIN
     Route: 048
     Dates: start: 2021
  10. ALPRAZOLAM [Suspect]
     Active Substance: ALPRAZOLAM
     Indication: Product used for unknown indication
     Dosage: RECEIVED 12 DROPS TWICE A DAY
     Route: 065
     Dates: start: 202204
  11. LORAZEPAM [Suspect]
     Active Substance: LORAZEPAM
     Indication: Depression
     Dosage: 2 MG, EACH EVENING
     Route: 065
     Dates: start: 2021
  12. PAROXETINE [Suspect]
     Active Substance: PAROXETINE
     Indication: Depression
     Route: 065
     Dates: start: 202204

REACTIONS (5)
  - Suicidal ideation [Unknown]
  - Sedation complication [Unknown]
  - Weight increased [Recovering/Resolving]
  - Intentional product misuse [Unknown]
  - Off label use [Unknown]

NARRATIVE: CASE EVENT DATE: 20210101
